FAERS Safety Report 23783575 (Version 1)
Quarter: 2024Q2

REPORT INFORMATION
  Report Type: Spontaneous
  Country: US (occurrence: US)
  Receive Date: 20240425
  Receipt Date: 20240425
  Transmission Date: 20240716
  Serious: Yes (Other)
  Sender: FDA-Public Use
  Company Number: US-Coherus Biosciences Inc.-2024-COH-US000257

PATIENT

DRUGS (4)
  1. ADALIMUMAB [Suspect]
     Active Substance: ADALIMUMAB\ISOPROPYL ALCOHOL
     Indication: Rheumatoid arthritis
     Dosage: 40 MG, Q2WEEKS
  2. TIZANIDINE [Concomitant]
     Active Substance: TIZANIDINE
  3. DICLOFENAC [Concomitant]
     Active Substance: DICLOFENAC
     Dosage: 750 MG, BID
  4. ALBUTEROL [Concomitant]
     Active Substance: ALBUTEROL

REACTIONS (1)
  - Eczema herpeticum [Recovering/Resolving]
